FAERS Safety Report 24358730 (Version 1)
Quarter: 2024Q3

REPORT INFORMATION
  Report Type: Spontaneous
  Country: US (occurrence: US)
  Receive Date: 20240924
  Receipt Date: 20240924
  Transmission Date: 20241016
  Serious: No
  Sender: PFIZER
  Company Number: US-PFIZER INC-PV202400030810

PATIENT
  Age: 80 Year
  Sex: Male
  Weight: 82.54 kg

DRUGS (2)
  1. INLYTA [Suspect]
     Active Substance: AXITINIB
     Indication: Metastatic renal cell carcinoma
     Dosage: 5 MG, 2X/DAY (TAKE ONE TABLET 5 MG BY MOUTH TWICE DAILY)
     Route: 048
  2. INLYTA [Suspect]
     Active Substance: AXITINIB
     Dosage: 1 MG, 2X/DAY (TAKE 2 TABLETS TWICE A DAY)

REACTIONS (1)
  - Gastrointestinal disorder [Unknown]
